FAERS Safety Report 6671277-7 (Version None)
Quarter: 2010Q2

REPORT INFORMATION
  Report Type: 
  Country: None (occurrence: None)
  Receive Date: 20100407
  Receipt Date: 20100330
  Transmission Date: 20101027
  Serious: Yes (Hospitalization)
  Sender: FDA-Public Use
  Company Number: IT-ROCHE-693201

PATIENT
  Sex: Female

DRUGS (5)
  1. KETOROLAC TROMETHAMINE [Suspect]
     Dosage: DRUG NAME REPORTED AS TORADOL 30 MG/ML SOLUTION FOR INJECTION
     Route: 030
     Dates: start: 20100313, end: 20100314
  2. ASPIRIN [Suspect]
     Indication: ANTICOAGULANT THERAPY
     Dosage: DRUG NAME REPORTED AS CARDIOASPIRIN (ACETYLSALICYLIC ACID) 100 MG GASTRORESISTEN TABLETS
     Route: 048
     Dates: start: 20000314, end: 20100315
  3. VOLTAREN [Suspect]
     Dosage: DRUG NAME: VOLTAREN (DICLOFENAC) 75MG/3ML SOLUTION FOR INJECTION FOR INTRAMUSCULAR USE
     Route: 030
     Dates: start: 20100313, end: 20100314
  4. CARDURA [Concomitant]
     Indication: HYPERTENSION
     Dosage: DRUG NAME REPORTED AS CARDURA (DOXAZOSIN MESILATE) 4 MG TABLETS
     Route: 048
     Dates: start: 20100314, end: 20100314
  5. ZIMOX [Concomitant]
     Dosage: DRUG NAME: ZIMOX (AMOXICILLIN TRIHYDRATE) 1 GM TABLETS
     Route: 048
     Dates: start: 20100311, end: 20100314

REACTIONS (4)
  - DUODENITIS [None]
  - GASTRIC ULCER [None]
  - GASTRITIS EROSIVE [None]
  - MELAENA [None]
